FAERS Safety Report 4400984-1 (Version None)
Quarter: 2004Q3

REPORT INFORMATION
  Report Type: 
  Country: None (occurrence: None)
  Receive Date: 20040907
  Receipt Date: 20030905
  Transmission Date: 20050211
  Serious: No
  Sender: FDA-Public Use
  Company Number: US-BRISTOL-MYERS SQUIBB COMPANY-12376356

PATIENT
  Age: 60 Year
  Sex: Female
  Weight: 49 kg

DRUGS (6)
  1. COUMADIN [Suspect]
     Indication: THROMBOSIS
     Dosage: DOSE VALUE:  8 TO 9 MG IN A VARYING DOSE
     Route: 048
  2. PREDNISOLONE [Concomitant]
  3. SEREVENT [Concomitant]
  4. FLOVENT [Concomitant]
  5. PROVENTIL [Concomitant]
  6. ANTIBIOTIC [Concomitant]
     Dosage: WAS TAKING ANTIBIOTICS ON 07-JUL-03.

REACTIONS (1)
  - INTERNATIONAL NORMALISED RATIO DECREASED [None]
